FAERS Safety Report 25977915 (Version 2)
Quarter: 2025Q4

REPORT INFORMATION
  Report Type: Spontaneous
  Country: US (occurrence: US)
  Receive Date: 20251030
  Receipt Date: 20251126
  Transmission Date: 20260117
  Serious: No
  Sender: SOMERSET THERAPEUTICS, LLC
  Company Number: US-MIT-25-75-US-2025-SOM-SPO-00026

PATIENT
  Age: 3 Year
  Weight: 15 kg

DRUGS (1)
  1. CISATRACURIUM BESYLATE [Suspect]
     Active Substance: CISATRACURIUM BESYLATE
     Indication: Paralysis
     Dosage: TITRATED BASED ON PATIENT RESPONSE
     Route: 041
     Dates: start: 20250823, end: 20250902

REACTIONS (1)
  - Drug ineffective [Unknown]

NARRATIVE: CASE EVENT DATE: 20250824
